FAERS Safety Report 9802387 (Version 1)
Quarter: 2014Q1

REPORT INFORMATION
  Report Type: Spontaneous
  Country: FR (occurrence: FR)
  Receive Date: 20140107
  Receipt Date: 20140107
  Transmission Date: 20141002
  Serious: Yes (Hospitalization)
  Sender: FDA-Public Use
  Company Number: FR-US-EMD SERONO, INC.-7260330

PATIENT
  Age: 33 Year
  Sex: Female

DRUGS (3)
  1. GONAL-F [Suspect]
     Indication: IN VITRO FERTILISATION
     Route: 058
     Dates: start: 20130702, end: 20130712
  2. OVITRELLE [Suspect]
     Indication: IN VITRO FERTILISATION
     Route: 058
     Dates: start: 20130713
  3. ORGALUTRAN /01453701/ [Suspect]
     Indication: IN VITRO FERTILISATION
     Dosage: 0.25 MG/0.5 ML SOLUTION FOR INJECTION
     Route: 058
     Dates: start: 20130704, end: 20130712

REACTIONS (5)
  - Hyponatraemia [Recovered/Resolved]
  - Haematocrit increased [Recovered/Resolved]
  - Ascites [Recovered/Resolved]
  - Oliguria [Recovered/Resolved]
  - Ovarian hyperstimulation syndrome [Recovered/Resolved]
